FAERS Safety Report 6957689-2 (Version None)
Quarter: 2010Q3

REPORT INFORMATION
  Report Type: 
  Country: None (occurrence: None)
  Receive Date: 20100826
  Receipt Date: 20100812
  Transmission Date: 20110219
  Serious: Yes (Other)
  Sender: FDA-Public Use
  Company Number: AUR-APL-2010-02078

PATIENT
  Sex: Male

DRUGS (2)
  1. MIRTAZAPINE [Suspect]
  2. AMITRIPTYLINE HYDROCHLORIDE [Suspect]

REACTIONS (1)
  - FEELING ABNORMAL [None]
